FAERS Safety Report 16123903 (Version 1)
Quarter: 2019Q1

REPORT INFORMATION
  Report Type: Spontaneous
  Country: CA (occurrence: CA)
  Receive Date: 20190327
  Receipt Date: 20190327
  Transmission Date: 20190418
  Serious: Yes (Hospitalization)
  Sender: FDA-Public Use
  Company Number: CA-ACTELION-A-NJ2018-172110

PATIENT
  Age: 38 Year
  Sex: Female

DRUGS (1)
  1. CARIPUL [Suspect]
     Active Substance: EPOPROSTENOL
     Indication: PULMONARY ARTERIAL HYPERTENSION
     Dosage: 19 NG/KG, PER MIN
     Route: 042
     Dates: start: 20140825

REACTIONS (4)
  - Hospitalisation [Unknown]
  - Malaise [Recovering/Resolving]
  - Product dispensing issue [Unknown]
  - Device breakage [Unknown]

NARRATIVE: CASE EVENT DATE: 20180507
